FAERS Safety Report 9637131 (Version 5)
Quarter: 2013Q4

REPORT INFORMATION
  Report Type: Spontaneous
  Country: IT (occurrence: IT)
  Receive Date: 20131022
  Receipt Date: 20131231
  Transmission Date: 20140711
  Serious: Yes (Hospitalization)
  Sender: FDA-Public Use
  Company Number: IT-RANBAXY-2013RR-74168

PATIENT
  Age: 26 Year
  Sex: Female

DRUGS (6)
  1. PARACETAMOL [Suspect]
     Indication: PYREXIA
     Dosage: 1000 MG, SINGLE
     Route: 048
     Dates: start: 20130928, end: 20130928
  2. BACTRIM [Suspect]
     Indication: URINARY TRACT INFECTION
     Dosage: 4 DF/DAY
     Route: 048
     Dates: start: 20130920, end: 20130927
  3. MEDROL [Concomitant]
     Indication: PYREXIA
     Dosage: UNK
     Route: 065
     Dates: start: 20130926
  4. MEDROL [Concomitant]
     Indication: ARTHRALGIA
  5. TRIMETON [Concomitant]
     Indication: PYREXIA
     Dosage: UNK
     Route: 065
     Dates: start: 20130926
  6. TRIMETON [Concomitant]
     Indication: ARTHRALGIA

REACTIONS (6)
  - Face oedema [Recovered/Resolved]
  - Lymphadenopathy [Recovered/Resolved]
  - Rash maculo-papular [Recovered/Resolved]
  - Urticaria [Recovered/Resolved]
  - Lymphadenopathy [None]
  - Drug intolerance [None]
